FAERS Safety Report 11059133 (Version 1)
Quarter: 2015Q2

REPORT INFORMATION
  Report Type: Spontaneous
  Country: US (occurrence: None)
  Receive Date: 20150420
  Receipt Date: 20150420
  Transmission Date: 20150821
  Serious: No
  Sender: FDA-Public Use
  Company Number: AEGR001176

PATIENT
  Age: 72 Year
  Sex: Female

DRUGS (2)
  1. UNKNOWN ANTIBIOTIC [Suspect]
     Active Substance: UNSPECIFIED INGREDIENT
     Indication: EAR INFECTION
  2. JUXTAPID [Suspect]
     Active Substance: LOMITAPIDE MESYLATE
     Indication: PRODUCT USED FOR UNKNOWN INDICATION
     Route: 048
     Dates: start: 20140328, end: 201404

REACTIONS (7)
  - Malaise [None]
  - Diarrhoea [None]
  - Ear infection [None]
  - Weight decreased [None]
  - Hypersensitivity [None]
  - Product used for unknown indication [None]
  - Abdominal discomfort [None]

NARRATIVE: CASE EVENT DATE: 20140328
